FAERS Safety Report 5132358-2 (Version None)
Quarter: 2006Q4

REPORT INFORMATION
  Report Type: 
  Country: None (occurrence: None)
  Receive Date: 20061023
  Receipt Date: 20060908
  Transmission Date: 20070319
  Serious: Yes (Hospitalization)
  Sender: FDA-Public Use
  Company Number: US-AMGEN-US193070

PATIENT
  Sex: Male
  Weight: 69.9 kg

DRUGS (14)
  1. ENBREL [Suspect]
     Indication: PSORIATIC ARTHROPATHY
     Route: 058
     Dates: start: 20030114
  2. ENBREL [Suspect]
  3. LISINOPRIL [Suspect]
     Dates: start: 20031119
  4. ALBUTEROL [Concomitant]
  5. AMIODARONE HCL [Concomitant]
  6. ASPIRIN [Concomitant]
  7. CALCIUM WITH VITAMIN D [Concomitant]
  8. TYLENOL W/ CODEINE NO. 3 [Concomitant]
  9. DOCUSATE [Concomitant]
  10. NITROGLYCERIN [Concomitant]
  11. RANITIDINE [Concomitant]
  12. TRIAMCINOLONE [Concomitant]
  13. METOPROLOL TARTRATE [Concomitant]
  14. IPRATROPIUM BROMIDE [Concomitant]

REACTIONS (3)
  - COLITIS ISCHAEMIC [None]
  - PERIPHERAL VASCULAR DISORDER [None]
  - RECTAL HAEMORRHAGE [None]
